FAERS Safety Report 5708060-2 (Version None)
Quarter: 2008Q2

REPORT INFORMATION
  Report Type: 
  Country: None (occurrence: None)
  Receive Date: 20080417
  Receipt Date: 20080409
  Transmission Date: 20081010
  Serious: Yes (Death, Other)
  Sender: FDA-Public Use
  Company Number: US-ASTRAZENECA-2008UW07239

PATIENT
  Age: 62 Year
  Sex: Male

DRUGS (13)
  1. CRESTOR [Suspect]
     Route: 048
     Dates: start: 20000605
  2. CRESTOR [Suspect]
     Route: 048
     Dates: start: 20020531
  3. ASPIRIN [Concomitant]
  4. COLESTIPOL HYDROCHLORIDE [Concomitant]
  5. AMLODIPINE [Concomitant]
  6. IRBESARTAN AND HYDROCHLOROTHIAZIDE [Concomitant]
  7. CLOPIDOGREL [Concomitant]
  8. MINERAL/VITAMIN [Concomitant]
  9. ALPHA TOCOPHEROL [Concomitant]
  10. ASCORBIC ACID [Concomitant]
  11. CELECOXIB [Concomitant]
  12. CREATINE [Concomitant]
  13. UBIDECARENONE [Concomitant]

REACTIONS (3)
  - AMYOTROPHIC LATERAL SCLEROSIS [None]
  - DEATH [None]
  - HYPOTENSION [None]
